FAERS Safety Report 9567111 (Version 1)
Quarter: 2013Q3

REPORT INFORMATION
  Report Type: Spontaneous
  Country: US (occurrence: US)
  Receive Date: 20130930
  Receipt Date: 20130930
  Transmission Date: 20140515
  Serious: No
  Sender: FDA-Public Use
  Company Number: US-AMGEN-USASP2012062349

PATIENT
  Age: 43 Year
  Sex: Female

DRUGS (1)
  1. ENBREL [Suspect]
     Indication: PRODUCT USED FOR UNKNOWN INDICATION
     Dosage: 50 MG, QWK
     Route: 058
     Dates: start: 201207

REACTIONS (5)
  - Injection site swelling [Unknown]
  - Injection site bruising [Unknown]
  - Injection site irritation [Unknown]
  - Injection site pruritus [Unknown]
  - Drug hypersensitivity [Unknown]
